FAERS Safety Report 5474590-4 (Version None)
Quarter: 2007Q4

REPORT INFORMATION
  Report Type: 
  Country: None (occurrence: None)
  Receive Date: 20071002
  Receipt Date: 20070926
  Transmission Date: 20080405
  Serious: Yes (Hospitalization, Other)
  Sender: FDA-Public Use
  Company Number: PHNU2007DE03250

PATIENT
  Age: 73 Year
  Sex: Female

DRUGS (4)
  1. ZOMETA [Suspect]
     Indication: OSTEOPOROSIS PROPHYLAXIS
     Dosage: 4 MG, UNK
     Route: 042
     Dates: start: 20070112
  2. GABAPENTIN [Concomitant]
     Dosage: 900 MG, QD
     Route: 065
     Dates: start: 20070423
  3. NOVALGIN [Concomitant]
     Dosage: 160 MG, QD
     Route: 065
     Dates: start: 20070405
  4. THALIDOMID [Concomitant]
     Indication: MULTIPLE MYELOMA
     Dosage: 50 MG, QD
     Route: 065
     Dates: start: 20070309

REACTIONS (3)
  - CEREBRAL INFARCTION [None]
  - PANCYTOPENIA [None]
  - PARAESTHESIA [None]
